FAERS Safety Report 6973005-4 (Version None)
Quarter: 2010Q3

REPORT INFORMATION
  Report Type: 
  Country: None (occurrence: None)
  Receive Date: 20100909
  Receipt Date: 20100902
  Transmission Date: 20110219
  Serious: Yes (Hospitalization)
  Sender: FDA-Public Use
  Company Number: BR-ABBOTT-10P-020-0668188-00

PATIENT
  Sex: Female
  Weight: 64 kg

DRUGS (2)
  1. SYNTHROID [Suspect]
     Indication: HYPOTHYROIDISM
     Route: 048
  2. HUMIRA [Concomitant]
     Indication: CROHN'S DISEASE
     Dosage: INDUCTION DOSE: 160MG, AFTER 14 DAYS (80MG) - 14 DAYS (40MG)
     Route: 058

REACTIONS (6)
  - ALOPECIA [None]
  - ANAEMIA [None]
  - CROHN'S DISEASE [None]
  - DRY SKIN [None]
  - HAIR TEXTURE ABNORMAL [None]
  - NAIL DISORDER [None]
